FAERS Safety Report 5236366-2 (Version None)
Quarter: 2007Q1

REPORT INFORMATION
  Report Type: 
  Country: None (occurrence: None)
  Receive Date: 20061208
  Receipt Date: 20060126
  Transmission Date: 20070707
  Serious: Yes (Other)
  Sender: FDA-Public Use
  Company Number: 2006UW01400

PATIENT

DRUGS (1)
  1. CRESTOR [Suspect]

REACTIONS (7)
  - FATIGUE [None]
  - MYALGIA [None]
  - NAUSEA [None]
  - NECK PAIN [None]
  - PYREXIA [None]
  - TINNITUS [None]
  - VERTIGO [None]
